FAERS Safety Report 10580940 (Version 1)
Quarter: 2014Q4

REPORT INFORMATION
  Report Type: Spontaneous
  Country: US (occurrence: None)
  Receive Date: 20141112
  Receipt Date: 20141112
  Transmission Date: 20150529
  Serious: Yes (Hospitalization, Other)
  Sender: FDA-Public Use
  Company Number: None

PATIENT
  Age: 40 Year
  Sex: Female
  Weight: 58.06 kg

DRUGS (1)
  1. OCTREOTIDE [Suspect]
     Active Substance: OCTREOTIDE
     Indication: HYPOGLYCAEMIA
     Dosage: GIVEN INTO/UNDER SKIN
     Route: 058
     Dates: start: 20141016, end: 20141102

REACTIONS (6)
  - Influenza like illness [None]
  - Crying [None]
  - Drug ineffective [None]
  - Injection site pain [None]
  - Product substitution issue [None]
  - Injection site bruising [None]

NARRATIVE: CASE EVENT DATE: 20141103
